FAERS Safety Report 10495054 (Version 1)
Quarter: 2014Q3

REPORT INFORMATION
  Report Type: Spontaneous
  Country: US (occurrence: None)
  Receive Date: 20140815
  Receipt Date: 20140815
  Transmission Date: 20150326
  Serious: Yes (Other)
  Sender: FDA-Public Use
  Company Number: ADR-2012-00741

PATIENT
  Age: 46 Year
  Sex: Female

DRUGS (3)
  1. HYDROMORPHONE INTRATHECAL [Suspect]
     Active Substance: HYDROMORPHONE
  2. BACLOFEN INTRATHECAL [Suspect]
     Active Substance: BACLOFEN
     Indication: PAIN
  3. BUPIVACAINE INTRATHECAL [Suspect]
     Active Substance: BUPIVACAINE

REACTIONS (4)
  - Pain [None]
  - Malaise [None]
  - Drug withdrawal syndrome [None]
  - Oedema peripheral [None]
